FAERS Safety Report 24007022 (Version 1)
Quarter: 2024Q2

REPORT INFORMATION
  Report Type: Spontaneous
  Country: US (occurrence: US)
  Receive Date: 20240624
  Receipt Date: 20240624
  Transmission Date: 20240716
  Serious: No
  Sender: FDA-Public Use
  Company Number: US-BRISTOL-MYERS SQUIBB COMPANY-2024-094002

PATIENT
  Age: 76 Year
  Sex: Male
  Weight: 78.4 kg

DRUGS (8)
  1. REVLIMID [Suspect]
     Active Substance: LENALIDOMIDE
     Indication: Plasma cell myeloma
     Route: 048
     Dates: start: 20150418, end: 20150910
  2. REVLIMID [Suspect]
     Active Substance: LENALIDOMIDE
     Route: 048
     Dates: start: 20180920, end: 20181224
  3. DECADRON [Concomitant]
     Active Substance: DEXAMETHASONE
     Indication: Plasma cell myeloma
     Dosage: FREQUENCY: 1 DAY A WEEK 3 WEEKS AND 1 WEEK OFF.
     Route: 048
     Dates: start: 20150418, end: 20150910
  4. DECADRON [Concomitant]
     Active Substance: DEXAMETHASONE
     Dosage: WEEKLY
     Route: 048
     Dates: start: 20150916, end: 20151223
  5. DECADRON [Concomitant]
     Active Substance: DEXAMETHASONE
     Dosage: WEEKLY
     Route: 048
     Dates: start: 20170130, end: 20180919
  6. DECADRON [Concomitant]
     Active Substance: DEXAMETHASONE
     Dosage: WEEKLY
     Route: 048
     Dates: start: 20180920, end: 20181226
  7. EMPLICITI [Concomitant]
     Active Substance: ELOTUZUMAB
     Indication: Plasma cell myeloma
     Dosage: DOSE: 10 MG/KG
     Route: 042
     Dates: start: 20180920, end: 20181108
  8. EMPLICITI [Concomitant]
     Active Substance: ELOTUZUMAB
     Dosage: DOSE: 10 MG/KG FREQUENCY: EVERY 2 WEEKS
     Route: 042
     Dates: start: 20181114, end: 20181226

REACTIONS (1)
  - Toxicity to various agents [Unknown]
